FAERS Safety Report 9705090 (Version 1)
Quarter: 2013Q4

REPORT INFORMATION
  Report Type: Spontaneous
  Country: US (occurrence: US)
  Receive Date: 20131122
  Receipt Date: 20131122
  Transmission Date: 20140711
  Serious: Yes (Other)
  Sender: FDA-Public Use
  Company Number: US-BAXTER-2013BAX045216

PATIENT
  Age: 69 Year
  Sex: Male

DRUGS (4)
  1. 0.9% SODIUM CHLORIDE INJECTION [Suspect]
     Indication: PRODUCT USED FOR UNKNOWN INDICATION
     Dosage: ONE LITER
  2. 0.9% SODIUM CHLORIDE IRRIGATION [Suspect]
     Indication: BLADDER IRRIGATION
  3. 5% DEXTROSE INJECTION [Suspect]
     Indication: PRODUCT USED FOR UNKNOWN INDICATION
     Dosage: { 1 LITER
  4. MANNITOL [Suspect]
     Indication: BLADDER IRRIGATION
     Dosage: 30 TO 40 LITERS

REACTIONS (1)
  - Hyponatraemia [Unknown]
